FAERS Safety Report 10287082 (Version 3)
Quarter: 2018Q3

REPORT INFORMATION
  Report Type: Spontaneous
  Country: US (occurrence: US)
  Receive Date: 20140709
  Receipt Date: 20180920
  Transmission Date: 20181010
  Serious: No
  Sender: FDA-Public Use
  Company Number: US-ASTRAZENECA-2014SE47740

PATIENT
  Age: 446 Month
  Sex: Female
  Weight: 63.5 kg

DRUGS (2)
  1. FASLODEX [Suspect]
     Active Substance: FULVESTRANT
     Indication: BREAST CANCER STAGE IV
     Route: 030
     Dates: start: 200810
  2. FASLODEX [Suspect]
     Active Substance: FULVESTRANT
     Indication: BREAST CANCER STAGE IV
     Route: 030
     Dates: start: 200811

REACTIONS (22)
  - Off label use [Not Recovered/Not Resolved]
  - Bone pain [Not Recovered/Not Resolved]
  - Back pain [Not Recovered/Not Resolved]
  - Myalgia [Not Recovered/Not Resolved]
  - Sciatica [Not Recovered/Not Resolved]
  - Cough [Recovered/Resolved]
  - Vertigo [Not Recovered/Not Resolved]
  - Chest pain [Not Recovered/Not Resolved]
  - Scar [Not Recovered/Not Resolved]
  - Oxygen saturation decreased [Unknown]
  - Fatigue [Not Recovered/Not Resolved]
  - Pharyngeal oedema [Recovered/Resolved]
  - Migraine [Unknown]
  - Loss of consciousness [Recovered/Resolved]
  - Nausea [Not Recovered/Not Resolved]
  - Adverse drug reaction [Unknown]
  - Hot flush [Not Recovered/Not Resolved]
  - Injection site bruising [Not Recovered/Not Resolved]
  - Throat tightness [Recovered/Resolved]
  - Dizziness [Not Recovered/Not Resolved]
  - Anxiety [Not Recovered/Not Resolved]
  - Chest discomfort [Not Recovered/Not Resolved]

NARRATIVE: CASE EVENT DATE: 200810
